FAERS Safety Report 19123115 (Version 2)
Quarter: 2021Q2

REPORT INFORMATION
  Report Type: Spontaneous
  Country: DE (occurrence: DE)
  Receive Date: 20210412
  Receipt Date: 20210505
  Transmission Date: 20210717
  Serious: Yes (Other)
  Sender: FDA-Public Use
  Company Number: NVSC2021DE075539

PATIENT
  Sex: Female
  Weight: 50 kg

DRUGS (7)
  1. MAYZENT [Suspect]
     Active Substance: SIPONIMOD
     Indication: SECONDARY PROGRESSIVE MULTIPLE SCLEROSIS
     Dosage: 2 MG, QD
     Route: 048
     Dates: start: 20201208, end: 20210331
  2. FAMPYRA [Concomitant]
     Active Substance: DALFAMPRIDINE
     Indication: ATAXIA
     Dosage: 20 MG, QD (BEFORE 2014)
     Route: 048
  3. VENLAFAXINE [Concomitant]
     Active Substance: VENLAFAXINE HYDROCHLORIDE
     Indication: DEPRESSION
     Dosage: 75 MG, QD (EXTENDED RELEASE TABLET)
     Route: 065
     Dates: start: 202008
  4. MAYZENT [Suspect]
     Active Substance: SIPONIMOD
     Indication: MULTIPLE SCLEROSIS
  5. AMANTADINE. [Concomitant]
     Active Substance: AMANTADINE HYDROCHLORIDE
     Indication: PRODUCT USED FOR UNKNOWN INDICATION
     Dosage: 100 MG, QD
     Route: 065
     Dates: start: 20210310
  6. PREGABALIN. [Concomitant]
     Active Substance: PREGABALIN
     Indication: NEURALGIA
     Dosage: 300 MG, QD (ABOUT 2019)
     Route: 048
     Dates: start: 2019
  7. DARIFENACIN. [Concomitant]
     Active Substance: DARIFENACIN
     Indication: URGE INCONTINENCE
     Dosage: 7.5 MG, QD (BEFORE AUG 2020)
     Route: 048

REACTIONS (3)
  - Neutropenia [Recovering/Resolving]
  - White blood cell count decreased [Unknown]
  - Lymphocyte count decreased [Unknown]
